FAERS Safety Report 10187906 (Version 1)
Quarter: 2014Q2

REPORT INFORMATION
  Report Type: Spontaneous
  Country: US (occurrence: US)
  Receive Date: 20140522
  Receipt Date: 20140522
  Transmission Date: 20141212
  Serious: No
  Sender: FDA-Public Use
  Company Number: US-SANOFI-AVENTIS-2013SA093262

PATIENT
  Age: 66 Year
  Sex: Female
  Weight: 102.06 kg

DRUGS (2)
  1. LANTUS [Suspect]
     Indication: DIABETES MELLITUS
     Dosage: DOSE:56 UNIT(S)
     Route: 051
     Dates: end: 20130915
  2. LANTUS [Suspect]
     Indication: DIABETES MELLITUS
     Dosage: DOSE:56 UNIT(S)
     Route: 051

REACTIONS (2)
  - Rash [Not Recovered/Not Resolved]
  - Feeling hot [Not Recovered/Not Resolved]
